FAERS Safety Report 16022528 (Version 1)
Quarter: 2019Q1

REPORT INFORMATION
  Report Type: Spontaneous
  Country: IT (occurrence: IT)
  Receive Date: 20190301
  Receipt Date: 20190301
  Transmission Date: 20190418
  Serious: Yes (Hospitalization, Disabling, Other)
  Sender: FDA-Public Use
  Company Number: IT-AUROBINDO PHARMA (ITALIA) S.R.L-AUR-APL-2014-06617

PATIENT

DRUGS (7)
  1. RANITIDINE. [Concomitant]
     Active Substance: RANITIDINE
     Indication: PRODUCT USED FOR UNKNOWN INDICATION
     Dosage: UNK
     Route: 065
  2. SILDENAFIL. [Suspect]
     Active Substance: SILDENAFIL
     Indication: PULMONARY VASCULAR RESISTANCE ABNORMALITY
     Dosage: 0.2 MG/KG THREE TIMES A DAY
     Route: 048
  3. FUROSEMIDE. [Concomitant]
     Active Substance: FUROSEMIDE
     Indication: PRODUCT USED FOR UNKNOWN INDICATION
     Dosage: UNK
     Route: 065
  4. AMIKACIN. [Concomitant]
     Active Substance: AMIKACIN
     Indication: ESCHERICHIA SEPSIS
     Dosage: UNK
     Route: 065
  5. ASPIRIN. [Concomitant]
     Active Substance: ASPIRIN
     Indication: PRODUCT USED FOR UNKNOWN INDICATION
     Dosage: UNK
     Route: 065
  6. SPIRONOLACTONE AND HYDROCHLOROTHIAZIDE [Concomitant]
     Active Substance: HYDROCHLOROTHIAZIDE\SPIRONOLACTONE
     Indication: PRODUCT USED FOR UNKNOWN INDICATION
     Dosage: UNK
     Route: 065
  7. VANCOMYCIN [Concomitant]
     Active Substance: VANCOMYCIN
     Indication: ESCHERICHIA SEPSIS
     Dosage: UNK
     Route: 065

REACTIONS (8)
  - Blindness [Recovering/Resolving]
  - Product use issue [Unknown]
  - Visual acuity reduced [Recovering/Resolving]
  - Optic ischaemic neuropathy [Recovering/Resolving]
  - Pupillary reflex impaired [Recovered/Resolved]
  - Optic atrophy [Not Recovered/Not Resolved]
  - Retinal haemorrhage [Recovered/Resolved]
  - Off label use [Unknown]
